FAERS Safety Report 8513411-X (Version None)
Quarter: 2012Q3

REPORT INFORMATION
  Report Type: 
  Country: None (occurrence: None)
  Receive Date: 20120717
  Receipt Date: 20120706
  Transmission Date: 20120928
  Serious: Yes (Hospitalization)
  Sender: FDA-Public Use
  Company Number: ES-BIOGENIDEC-2012BI024224

PATIENT
  Age: 37 Year
  Sex: Female

DRUGS (7)
  1. METAMIZOLE [Concomitant]
  2. ENOXAPARIN [Concomitant]
  3. DEXKETOPROFEN [Concomitant]
  4. ACETAMINOPHEN [Concomitant]
  5. OMEPRAZOLE [Concomitant]
  6. TYSABRI [Suspect]
     Indication: MULTIPLE SCLEROSIS
     Route: 042
     Dates: start: 20080303, end: 20120410
  7. PANTOPRAZOLE [Concomitant]

REACTIONS (1)
  - SALPINGO-OOPHORECTOMY UNILATERAL [None]
